FAERS Safety Report 16418302 (Version 4)
Quarter: 2023Q1

REPORT INFORMATION
  Report Type: Spontaneous
  Country: US (occurrence: None)
  Receive Date: 20190612
  Receipt Date: 20230215
  Transmission Date: 20230418
  Serious: Yes (Other)
  Sender: FDA-Public Use
  Company Number: 2018SF21218

PATIENT
  Age: 57 Year
  Sex: Female
  Weight: 172.8 kg

DRUGS (78)
  1. NEXIUM [Suspect]
     Active Substance: ESOMEPRAZOLE MAGNESIUM
     Indication: Gastrooesophageal reflux disease
     Route: 048
     Dates: start: 199901, end: 201712
  2. NEXIUM [Suspect]
     Active Substance: ESOMEPRAZOLE MAGNESIUM
     Indication: Gastrooesophageal reflux disease
     Route: 048
     Dates: start: 20021213
  3. NEXIUM [Suspect]
     Active Substance: ESOMEPRAZOLE MAGNESIUM
     Indication: Gastrooesophageal reflux disease
     Route: 048
     Dates: start: 20021115, end: 20171208
  4. NEXIUM [Suspect]
     Active Substance: ESOMEPRAZOLE MAGNESIUM
     Indication: Gastrooesophageal reflux disease
     Route: 048
     Dates: start: 20031010
  5. NEXIUM [Suspect]
     Active Substance: ESOMEPRAZOLE MAGNESIUM
     Indication: Gastrooesophageal reflux disease
     Route: 048
     Dates: start: 20030924
  6. NEXIUM [Suspect]
     Active Substance: ESOMEPRAZOLE MAGNESIUM
     Indication: Gastrooesophageal reflux disease
     Route: 048
     Dates: start: 20041018
  7. NEXIUM [Suspect]
     Active Substance: ESOMEPRAZOLE MAGNESIUM
     Indication: Gastrooesophageal reflux disease
     Route: 048
     Dates: start: 20051102
  8. NEXIUM [Suspect]
     Active Substance: ESOMEPRAZOLE MAGNESIUM
     Indication: Gastrooesophageal reflux disease
     Route: 048
     Dates: start: 20120504
  9. NEXIUM [Suspect]
     Active Substance: ESOMEPRAZOLE MAGNESIUM
     Indication: Gastrooesophageal reflux disease
     Route: 048
     Dates: start: 20130604
  10. NEXIUM [Suspect]
     Active Substance: ESOMEPRAZOLE MAGNESIUM
     Indication: Gastrooesophageal reflux disease
     Route: 048
  11. NEXIUM [Suspect]
     Active Substance: ESOMEPRAZOLE MAGNESIUM
     Indication: Gastrooesophageal reflux disease
     Dosage: GENERIC
  12. NEXIUM [Suspect]
     Active Substance: ESOMEPRAZOLE MAGNESIUM
     Indication: Gastrooesophageal reflux disease
     Route: 048
     Dates: start: 20021115, end: 20060818
  13. NEXIUM [Suspect]
     Active Substance: ESOMEPRAZOLE MAGNESIUM
     Indication: Gastrooesophageal reflux disease
     Route: 048
     Dates: start: 20120203
  14. PRILOSEC [Suspect]
     Active Substance: OMEPRAZOLE MAGNESIUM
     Indication: Gastrooesophageal reflux disease
     Route: 048
     Dates: start: 199901, end: 201712
  15. PRILOSEC [Suspect]
     Active Substance: OMEPRAZOLE MAGNESIUM
     Indication: Gastrooesophageal reflux disease
     Dosage: GENERIC
     Route: 048
     Dates: start: 20110610
  16. PRILOSEC [Suspect]
     Active Substance: OMEPRAZOLE MAGNESIUM
     Indication: Gastrooesophageal reflux disease
     Dosage: GENERIC
     Route: 048
     Dates: start: 20111031
  17. PRILOSEC [Suspect]
     Active Substance: OMEPRAZOLE MAGNESIUM
     Indication: Gastrooesophageal reflux disease
     Dosage: GENERIC
     Route: 048
     Dates: start: 20120105
  18. PRILOSEC [Suspect]
     Active Substance: OMEPRAZOLE MAGNESIUM
     Indication: Gastrooesophageal reflux disease
     Route: 048
     Dates: start: 19990101, end: 20041231
  19. PRILOSEC [Suspect]
     Active Substance: OMEPRAZOLE MAGNESIUM
     Indication: Gastrooesophageal reflux disease
     Route: 048
     Dates: start: 1999, end: 2004
  20. PRILOSEC [Suspect]
     Active Substance: OMEPRAZOLE MAGNESIUM
     Indication: Gastrooesophageal reflux disease
     Dosage: GENERIC
     Dates: start: 20110304, end: 20120120
  21. PREVACID [Suspect]
     Active Substance: LANSOPRAZOLE
     Indication: Gastrooesophageal reflux disease
     Dates: start: 199901, end: 201712
  22. PREVACID [Suspect]
     Active Substance: LANSOPRAZOLE
     Indication: Gastrooesophageal reflux disease
     Dates: start: 20060921, end: 20100903
  23. PREVACID [Suspect]
     Active Substance: LANSOPRAZOLE
     Indication: Gastrooesophageal reflux disease
     Dates: start: 20080307
  24. PREVACID [Suspect]
     Active Substance: LANSOPRAZOLE
     Indication: Gastrooesophageal reflux disease
     Dates: start: 20081230
  25. PREVACID [Suspect]
     Active Substance: LANSOPRAZOLE
     Indication: Gastrooesophageal reflux disease
     Dates: start: 20090203
  26. PREVACID [Suspect]
     Active Substance: LANSOPRAZOLE
     Indication: Gastrooesophageal reflux disease
     Dates: start: 20060921, end: 20120104
  27. PREVACID [Suspect]
     Active Substance: LANSOPRAZOLE
     Indication: Gastrooesophageal reflux disease
     Dosage: GENERIC
     Dates: start: 201010, end: 201102
  28. PREVACID [Suspect]
     Active Substance: LANSOPRAZOLE
     Indication: Gastrooesophageal reflux disease
     Dates: start: 20090731
  29. PREVACID [Suspect]
     Active Substance: LANSOPRAZOLE
     Indication: Gastrooesophageal reflux disease
     Dates: start: 20090902
  30. PREVACID [Suspect]
     Active Substance: LANSOPRAZOLE
     Indication: Gastrooesophageal reflux disease
     Dates: start: 20091002
  31. PANTOPRAZOLE [Suspect]
     Active Substance: PANTOPRAZOLE
     Indication: Gastrooesophageal reflux disease
     Dates: start: 20110204, end: 20110304
  32. FUROSEMIDE [Concomitant]
     Active Substance: FUROSEMIDE
  33. ERYTHROCIN [Concomitant]
     Active Substance: ERYTHROMYCIN LACTOBIONATE
  34. NIFEDIPINE [Concomitant]
     Active Substance: NIFEDIPINE
  35. AMITRIPTYLINE [Concomitant]
     Active Substance: AMITRIPTYLINE
  36. ALBUTEROL [Concomitant]
     Active Substance: ALBUTEROL
  37. ASPIRIN [Concomitant]
     Active Substance: ASPIRIN
  38. FLUOXETINE [Concomitant]
     Active Substance: FLUOXETINE HYDROCHLORIDE
  39. KLOR-CON [Concomitant]
     Active Substance: POTASSIUM CHLORIDE
  40. PREMARIN [Concomitant]
     Active Substance: ESTROGENS, CONJUGATED
  41. ENALAPRIL [Concomitant]
     Active Substance: ENALAPRIL
  42. CARISOPRODOL [Concomitant]
     Active Substance: CARISOPRODOL
  43. ATENOLOL [Concomitant]
     Active Substance: ATENOLOL
  44. FENOPROFEN [Concomitant]
     Active Substance: FENOPROFEN
  45. ACETASOL [Concomitant]
     Active Substance: ACETIC ACID
  46. TRIMOX [Concomitant]
     Active Substance: AMOXICILLIN
  47. NORVASC [Concomitant]
     Active Substance: AMLODIPINE BESYLATE
  48. AVELOX [Concomitant]
     Active Substance: MOXIFLOXACIN HYDROCHLORIDE
  49. METFORMIN [Concomitant]
     Active Substance: METFORMIN HYDROCHLORIDE
  50. CRESTOR [Concomitant]
     Active Substance: ROSUVASTATIN CALCIUM
  51. BENZONATATE [Concomitant]
     Active Substance: BENZONATATE
  52. LOVASTATIN [Concomitant]
     Active Substance: LOVASTATIN
  53. IBUPROFEN [Concomitant]
     Active Substance: IBUPROFEN
  54. SAVELLA [Concomitant]
     Active Substance: MILNACIPRAN HYDROCHLORIDE
  55. CEPHALEXIN [Concomitant]
     Active Substance: CEPHALEXIN
  56. GEMFIBROZIL [Concomitant]
     Active Substance: GEMFIBROZIL
  57. PRAZOSIN [Concomitant]
     Active Substance: PRAZOSIN
  58. POTASSIUM CHLORIDE [Concomitant]
     Active Substance: POTASSIUM CHLORIDE
  59. DOXYCYCLINE HYDROCHLORIDE [Concomitant]
     Active Substance: DOXYCYCLINE HYDROCHLORIDE
  60. LASIX [Concomitant]
     Active Substance: FUROSEMIDE
  61. LOPID [Concomitant]
     Active Substance: GEMFIBROZIL
  62. OXYCODONE [Concomitant]
     Active Substance: OXYCODONE
  63. PROAIR HFA [Concomitant]
     Active Substance: ALBUTEROL SULFATE
  64. TIZANIDINE [Concomitant]
     Active Substance: TIZANIDINE
  65. VASOTEC [Concomitant]
     Active Substance: ENALAPRIL MALEATE
  66. VENTOLIN [Concomitant]
     Active Substance: ALBUTEROL SULFATE
  67. VITAMIN D [Concomitant]
     Active Substance: VITAMIN D NOS
  68. MINIPRESS [Concomitant]
     Active Substance: PRAZOSIN HYDROCHLORIDE
  69. OXYCODONE HYDROCHLORIDE [Concomitant]
     Active Substance: OXYCODONE HYDROCHLORIDE
  70. PERIACTIN [Concomitant]
     Active Substance: CYPROHEPTADINE HYDROCHLORIDE
  71. ZITHROMAX [Concomitant]
     Active Substance: AZITHROMYCIN DIHYDRATE
  72. DIFLUCAN [Concomitant]
     Active Substance: FLUCONAZOLE
  73. BACTRIM DS [Concomitant]
     Active Substance: SULFAMETHOXAZOLE\TRIMETHOPRIM
  74. SEPTRA [Concomitant]
     Active Substance: SULFAMETHOXAZOLE\TRIMETHOPRIM
  75. CIPROFLOXACIN [Concomitant]
     Active Substance: CIPROFLOXACIN
  76. DICLOFENAC SODIUM [Concomitant]
     Active Substance: DICLOFENAC SODIUM
  77. AZITHROMYCIN [Concomitant]
     Active Substance: AZITHROMYCIN
     Indication: Congenital infection
  78. CLOTRIM/BETA [Concomitant]

REACTIONS (7)
  - Acute kidney injury [Unknown]
  - Chronic kidney disease [Not Recovered/Not Resolved]
  - End stage renal disease [Unknown]
  - Renal injury [Unknown]
  - Tubulointerstitial nephritis [Unknown]
  - Renal failure [Not Recovered/Not Resolved]
  - Dyspepsia [Unknown]

NARRATIVE: CASE EVENT DATE: 20150101
